FAERS Safety Report 10097224 (Version 1)
Quarter: 2014Q2

REPORT INFORMATION
  Report Type: Report from Study
  Country: US (occurrence: US)
  Receive Date: 20140422
  Receipt Date: 20140422
  Transmission Date: 20141212
  Serious: Yes (Hospitalization)
  Sender: FDA-Public Use
  Company Number: PHEH2014US007760

PATIENT
  Age: 30 Year
  Sex: Female
  Weight: 53 kg

DRUGS (11)
  1. TOBI PODHALER [Suspect]
     Indication: CYSTIC FIBROSIS
     Dosage: 112 MG, BID
     Route: 055
     Dates: start: 201401, end: 20140121
  2. TOBI PODHALER [Suspect]
     Indication: INFECTIVE EXACERBATION OF CHRONIC OBSTRUCTIVE AIRWAYS DISEASE
  3. CREON [Concomitant]
     Dosage: UNK
  4. ZITHROMAX [Concomitant]
     Dosage: UNK
  5. SINGULAIR [Concomitant]
     Dosage: UNK
  6. PULMOZYME [Concomitant]
     Dosage: UNK
  7. SODIUM CHLORIDE [Concomitant]
     Dosage: UNK
  8. FISH OIL [Concomitant]
     Dosage: UNK
  9. VITAMIN D [Concomitant]
     Dosage: UNK
  10. FOLIC ACID [Concomitant]
     Dosage: UNK
  11. CALCIUM [Concomitant]
     Dosage: UNK

REACTIONS (3)
  - Hypersensitivity [Recovering/Resolving]
  - Respiratory disorder [Recovering/Resolving]
  - Pulmonary function test decreased [Recovering/Resolving]
